FAERS Safety Report 7992979-6 (Version None)
Quarter: 2011Q4

REPORT INFORMATION
  Report Type: 
  Country: None (occurrence: None)
  Receive Date: 20111219
  Receipt Date: 20110406
  Transmission Date: 20120403
  Serious: No
  Sender: FDA-Public Use
  Company Number: US-ASTRAZENECA-2011SE19795

PATIENT
  Age: 75 Year
  Sex: Male

DRUGS (2)
  1. CRESTOR [Suspect]
     Route: 048
  2. COENZYME Q10 [Concomitant]

REACTIONS (3)
  - DRY MOUTH [None]
  - FATIGUE [None]
  - MUSCLE SPASMS [None]
